FAERS Safety Report 9916477 (Version 1)
Quarter: 2014Q1

REPORT INFORMATION
  Report Type: Spontaneous
  Country: FR (occurrence: FR)
  Receive Date: 20140221
  Receipt Date: 20140221
  Transmission Date: 20141002
  Serious: Yes (Other)
  Sender: FDA-Public Use
  Company Number: FR-BAYER-2014-024688

PATIENT
  Age: 55 Year
  Sex: Male
  Weight: 73 kg

DRUGS (1)
  1. NEXAVAR [Suspect]
     Indication: HEPATOCELLULAR CARCINOMA
     Dosage: 200 MG, BID
     Route: 048
     Dates: start: 201301, end: 201308

REACTIONS (4)
  - Skin toxicity [Recovered/Resolved]
  - Gastrointestinal toxicity [Recovered/Resolved]
  - Headache [Recovered/Resolved]
  - Gingival pain [Recovered/Resolved]
